FAERS Safety Report 6178026-X (Version None)
Quarter: 2009Q2

REPORT INFORMATION
  Report Type: 
  Country: None (occurrence: None)
  Receive Date: 20090501
  Receipt Date: 20090501
  Transmission Date: 20091009
  Serious: Yes (Hospitalization)
  Sender: FDA-Public Use
  Company Number: None

PATIENT
  Age: 35 Year
  Sex: Male
  Weight: 88 kg

DRUGS (2)
  1. QUETIAPINE FUMARATE [Suspect]
     Indication: DEPRESSION
     Dosage: 600 MG AT BEDTIME PO
     Route: 048
     Dates: start: 20090414, end: 20090415
  2. BUSPIRONE HCL [Suspect]
     Indication: DEPRESSION
     Dosage: 10 MG TID PO
     Route: 048
     Dates: start: 20090414, end: 20090415

REACTIONS (5)
  - CONFUSIONAL STATE [None]
  - HYPOTENSION [None]
  - MENTAL STATUS CHANGES [None]
  - RESPIRATORY DEPRESSION [None]
  - SEDATION [None]
